FAERS Safety Report 7029108-1 (Version None)
Quarter: 2010Q4

REPORT INFORMATION
  Report Type: 
  Country: None (occurrence: None)
  Receive Date: 20101005
  Receipt Date: 20100923
  Transmission Date: 20110411
  Serious: Yes (Other)
  Sender: FDA-Public Use
  Company Number: US-CELGENEUS-163-21880-10092209

PATIENT
  Age: 74 Year
  Sex: Female
  Weight: 82.5 kg

DRUGS (4)
  1. REVLIMID [Suspect]
     Indication: MULTIPLE MYELOMA
     Route: 048
     Dates: start: 20050818
  2. REVLIMID [Suspect]
     Route: 048
     Dates: start: 20080422, end: 20080423
  3. DEXAMETHASONE [Suspect]
     Indication: MULTIPLE MYELOMA
     Route: 048
     Dates: start: 20050818
  4. DEXAMETHASONE [Suspect]
     Route: 048
     Dates: start: 20080422, end: 20080422

REACTIONS (1)
  - ATAXIA [None]
